FAERS Safety Report 8364630-7 (Version None)
Quarter: 2012Q2

REPORT INFORMATION
  Report Type: 
  Country: None (occurrence: None)
  Receive Date: 20120516
  Receipt Date: 20120510
  Transmission Date: 20120825
  Serious: Yes (Death, Other)
  Sender: FDA-Public Use
  Company Number: PL-AMGEN-POLSP2012025594

PATIENT
  Age: 81 Year
  Sex: Male

DRUGS (16)
  1. ARANESP [Suspect]
     Dosage: 10 MUG, UNK
     Route: 042
     Dates: start: 20120418
  2. FUROSEMIDUM                        /00032601/ [Concomitant]
     Indication: DIURETIC THERAPY
  3. ARANESP [Suspect]
     Dosage: 40 MUG, QWK
     Route: 042
     Dates: start: 20120222, end: 20120320
  4. CALPEROS                           /00751519/ [Concomitant]
     Dosage: 1 G, BID
     Route: 048
     Dates: start: 20120407, end: 20120419
  5. PANTOPRAZOLE [Concomitant]
     Dosage: 40 MG, UNK
     Route: 048
     Dates: start: 20120202, end: 20120419
  6. VENOFER [Concomitant]
     Indication: ANAEMIA
     Dosage: 100 MG, UNK
     Route: 042
     Dates: start: 20120128, end: 20120407
  7. EFFOX [Concomitant]
     Indication: MYOCARDIAL ISCHAEMIA
     Dosage: 25 MG, UNK
     Route: 048
     Dates: start: 20120123, end: 20120419
  8. BIOTUM [Concomitant]
     Indication: INFECTION
     Dosage: 1 G, BID
     Route: 048
     Dates: start: 20120418, end: 20120418
  9. ARANESP [Suspect]
     Indication: ANAEMIA
     Dosage: 60 MUG, 2 TIMES/WK
     Route: 042
     Dates: start: 20120208, end: 20120214
  10. ARANESP [Suspect]
     Dosage: 30 MUG, QWK
     Route: 042
     Dates: start: 20120215, end: 20120221
  11. ARANESP [Suspect]
     Dosage: 25 MUG, QWK
     Route: 042
     Dates: start: 20120321, end: 20120417
  12. FUROSEMIDUM                        /00032601/ [Concomitant]
     Dosage: 80 MG, 5 TIMES/WK
     Route: 048
     Dates: start: 20120123, end: 20120419
  13. ASPIRIN [Concomitant]
     Indication: ANTIPLATELET THERAPY
     Dosage: 75 MG, TID
     Route: 048
     Dates: start: 20120123, end: 20120418
  14. ACIDUM FOLICUM [Concomitant]
     Indication: ANAEMIA
     Dosage: 5 MG, UNK
     Route: 048
     Dates: start: 20120123, end: 20120419
  15. ALFADIOL [Concomitant]
     Dosage: 0.25 MUG, QD
     Route: 048
     Dates: start: 20120211, end: 20120418
  16. METOPROLOL TARTRATE [Concomitant]
     Dosage: 75 MG, UNK
     Route: 048
     Dates: start: 20120215, end: 20120419

REACTIONS (4)
  - URINARY TRACT INFECTION [None]
  - HYPERTHYROIDISM [None]
  - DEATH [None]
  - LOSS OF CONSCIOUSNESS [None]
